FAERS Safety Report 18476333 (Version 32)
Quarter: 2024Q2

REPORT INFORMATION
  Report Type: Report from Study
  Country: US (occurrence: US)
  Receive Date: 20201106
  Receipt Date: 20240410
  Transmission Date: 20240716
  Serious: Yes (Hospitalization, Other)
  Sender: FDA-Public Use
  Company Number: US-SHIRE-US202013345

PATIENT
  Age: 66 Year
  Sex: Female
  Weight: 68 kg

DRUGS (28)
  1. HUMAN IMMUNOGLOBULIN G\HYALURONIDASE RECOMBINANT HUMAN [Suspect]
     Active Substance: HUMAN IMMUNOGLOBULIN G\HYALURONIDASE (HUMAN RECOMBINANT)
     Indication: Immunodeficiency common variable
     Dosage: 50 GRAM, Q4WEEKS
     Route: 058
     Dates: start: 20150521
  2. HUMAN IMMUNOGLOBULIN G\HYALURONIDASE RECOMBINANT HUMAN [Suspect]
     Active Substance: HUMAN IMMUNOGLOBULIN G\HYALURONIDASE (HUMAN RECOMBINANT)
     Indication: Primary immunodeficiency syndrome
     Dosage: 50 GRAM, Q4WEEKS
     Route: 058
     Dates: start: 20150529
  3. HUMAN IMMUNOGLOBULIN G\HYALURONIDASE RECOMBINANT HUMAN [Suspect]
     Active Substance: HUMAN IMMUNOGLOBULIN G\HYALURONIDASE (HUMAN RECOMBINANT)
     Dosage: 50 GRAM, MONTHLY
     Route: 065
  4. HUMAN IMMUNOGLOBULIN G [Suspect]
     Active Substance: HUMAN IMMUNOGLOBULIN G
     Indication: Immunodeficiency common variable
     Dosage: UNK
     Route: 042
  5. COVID-19 VACCINE NOS [Suspect]
     Active Substance: COVID-19 VACCINE NOS
     Indication: COVID-19 immunisation
     Dosage: UNK
     Route: 065
  6. CEFDINIR [Suspect]
     Active Substance: CEFDINIR
     Indication: Product used for unknown indication
     Dosage: UNK
     Route: 065
  7. DIPHENHYDRAMINE HYDROCHLORIDE [Concomitant]
     Active Substance: DIPHENHYDRAMINE HYDROCHLORIDE
     Route: 065
  8. METOPROLOL TARTRATE [Concomitant]
     Active Substance: METOPROLOL TARTRATE
     Dosage: UNK
     Route: 065
  9. HERBALS\TURMERIC [Concomitant]
     Active Substance: HERBALS\TURMERIC
     Dosage: UNK
     Route: 065
  10. FLUTICASONE PROPIONATE [Concomitant]
     Active Substance: FLUTICASONE PROPIONATE
     Dosage: UNK
     Route: 065
  11. ZYRTEC [Concomitant]
     Active Substance: CETIRIZINE HYDROCHLORIDE
     Dosage: UNK
     Route: 065
  12. TRIAMCINOLONE ACETONIDE [Concomitant]
     Active Substance: TRIAMCINOLONE ACETONIDE
  13. ACETAMINOPHEN [Concomitant]
     Active Substance: ACETAMINOPHEN
     Dosage: UNK
     Route: 065
  14. DICYCLOMINE HYDROCHLORIDE [Concomitant]
     Active Substance: DICYCLOMINE HYDROCHLORIDE
     Dosage: UNK
     Route: 065
  15. DIPHENOXYLATE [Concomitant]
     Active Substance: DIPHENOXYLATE
     Dosage: UNK
     Route: 065
  16. ATROPINE [Concomitant]
     Active Substance: ATROPINE\ATROPINE SULFATE
     Dosage: UNK
     Route: 065
  17. SODIUM CHLORIDE [Concomitant]
     Active Substance: SODIUM CHLORIDE
     Dosage: UNK
     Route: 065
  18. GABAPENTIN [Concomitant]
     Active Substance: GABAPENTIN
     Dosage: UNK
     Route: 065
  19. TRAZODONE [Concomitant]
     Active Substance: TRAZODONE HYDROCHLORIDE
     Dosage: UNK
     Route: 065
  20. DEXAMETHASONE\NEOMYCIN\POLYMYXIN B [Concomitant]
     Active Substance: DEXAMETHASONE\NEOMYCIN\POLYMYXIN B
     Indication: Product used for unknown indication
     Dosage: UNK
     Route: 065
  21. ASPIRIN [Concomitant]
     Active Substance: ASPIRIN
     Dosage: UNK
     Route: 065
  22. LIDOCAINE [Concomitant]
     Active Substance: LIDOCAINE
     Dosage: UNK
     Route: 065
  23. PREDNISONE [Concomitant]
     Active Substance: PREDNISONE
     Indication: Product used for unknown indication
     Dosage: UNK
     Route: 065
  24. DOXYCYCLINE HYCLATE [Concomitant]
     Active Substance: DOXYCYCLINE HYCLATE
     Dosage: UNK
     Route: 065
  25. LORAZEPAM [Concomitant]
     Active Substance: LORAZEPAM
     Dosage: UNK
     Route: 065
  26. EPINEPHRINE [EPINEPHRINE HYDROCHLORIDE] [Concomitant]
     Dosage: UNK
     Route: 065
  27. FLONASE [Concomitant]
     Active Substance: FLUTICASONE PROPIONATE
     Dosage: UNK
     Route: 065
  28. LAMICTAL XR [Concomitant]
     Active Substance: LAMOTRIGINE
     Dosage: UNK
     Route: 065

REACTIONS (60)
  - Cataract [Unknown]
  - Retinal tear [Unknown]
  - Loss of consciousness [Unknown]
  - Syncope [Unknown]
  - Hepatomegaly [Recovered/Resolved]
  - Myocardial infarction [Unknown]
  - Angina pectoris [Unknown]
  - Arthritis [Unknown]
  - Malabsorption [Unknown]
  - Pancreatic cyst [Unknown]
  - Steatorrhoea [Unknown]
  - Hepatic cyst [Unknown]
  - Ligament rupture [Unknown]
  - Procrastination [Unknown]
  - Laryngitis [Unknown]
  - Osteoporosis [Unknown]
  - Ear infection [Unknown]
  - Osteopenia [Unknown]
  - Body height decreased [Unknown]
  - COVID-19 [Unknown]
  - Constipation [Unknown]
  - Myringosclerosis [Unknown]
  - Hordeolum [Unknown]
  - Eye infection [Unknown]
  - Irritable bowel syndrome [Unknown]
  - Visual impairment [Unknown]
  - Sinusitis [Recovered/Resolved]
  - Infusion site discharge [Unknown]
  - Otitis media [Recovered/Resolved]
  - Dyspnoea [Unknown]
  - Urticaria [Recovered/Resolved]
  - Gastroenteritis viral [Unknown]
  - Influenza [Unknown]
  - Nasopharyngitis [Recovering/Resolving]
  - Viral infection [Unknown]
  - Breast cyst [Unknown]
  - Hypoacusis [Unknown]
  - Fall [Unknown]
  - Ligament sprain [Unknown]
  - Drug hypersensitivity [Recovering/Resolving]
  - Obstruction [Unknown]
  - Gastrointestinal disorder [Unknown]
  - Immunisation reaction [Unknown]
  - Limb discomfort [Unknown]
  - Eye swelling [Recovering/Resolving]
  - Diarrhoea [Not Recovered/Not Resolved]
  - Abdominal pain upper [Unknown]
  - Infusion site haemorrhage [Unknown]
  - Fatigue [Unknown]
  - Infusion site pruritus [Unknown]
  - Rash [Unknown]
  - Pruritus [Unknown]
  - Dizziness [Unknown]
  - Balance disorder [Unknown]
  - Back pain [Unknown]
  - Device infusion issue [Unknown]
  - Needle issue [Unknown]
  - Headache [Not Recovered/Not Resolved]
  - Product dose omission issue [Unknown]
  - Inappropriate schedule of product administration [Unknown]

NARRATIVE: CASE EVENT DATE: 20210824
